FAERS Safety Report 9085580 (Version 1)
Quarter: 2013Q1

REPORT INFORMATION
  Report Type: Report from Study
  Country: US (occurrence: US)
  Receive Date: 20130131
  Receipt Date: 20130131
  Transmission Date: 20140127
  Serious: No
  Sender: FDA-Public Use
  Company Number: US-ABBOTT-12P-163-0990820-00

PATIENT
  Age: 44 Year
  Sex: Female

DRUGS (3)
  1. HUMIRA [Suspect]
     Indication: CROHN^S DISEASE
     Dates: start: 201207
  2. PREDNISONE [Concomitant]
     Indication: CROHN^S DISEASE
     Dosage: 30 MG DAILY
  3. PENTASA [Concomitant]
     Indication: CROHN^S DISEASE
     Dosage: 8 TABLETS DAILY

REACTIONS (3)
  - Drug ineffective [Not Recovered/Not Resolved]
  - Swelling [Unknown]
  - Vomiting [Unknown]
